FAERS Safety Report 6814641-5 (Version None)
Quarter: 2010Q3

REPORT INFORMATION
  Report Type: 
  Country: None (occurrence: None)
  Receive Date: 20100702
  Receipt Date: 20100701
  Transmission Date: 20110219
  Serious: Yes (Disabling)
  Sender: FDA-Public Use
  Company Number: GB-PFIZER INC-2009227424

PATIENT
  Age: 45 Year
  Sex: Male
  Weight: 71.7 kg

DRUGS (1)
  1. DOXYCYCLINE HYCLATE [Suspect]
     Indication: MALARIA PROPHYLAXIS
     Dosage: 100 MG, UNK
     Route: 048
     Dates: start: 20081204, end: 20081211

REACTIONS (1)
  - BLISTER [None]
